FAERS Safety Report 7505734-8 (Version None)
Quarter: 2011Q2

REPORT INFORMATION
  Report Type: 
  Country: None (occurrence: None)
  Receive Date: 20110404
  Receipt Date: 20101123
  Transmission Date: 20111010
  Serious: Yes (Other)
  Sender: FDA-Public Use
  Company Number: 011991

PATIENT
  Age: 24 Year
  Sex: Male

DRUGS (8)
  1. ANTI-THYMOCYTE GLOBULIN NOS [Concomitant]
  2. FILGRASTIM (FILGRASTIM) [Concomitant]
  3. BUSULFEX [Suspect]
     Indication: STEM CELL TRANSPLANT
     Dosage: 0.8 MG/KG, Q6HR, INTRAVENOUS
     Route: 042
  4. TACROLIMUS [Concomitant]
  5. CYCLOPHOSPHAMIDE [Concomitant]
  6. IG VENA N (IMMUNOGLOBULIN HUMAN NORMAL) [Concomitant]
  7. METHOTREXATE [Concomitant]
  8. RITUXIMAB (RITUXIMAB) [Concomitant]

REACTIONS (1)
  - THROMBOCYTOPENIA [None]
